FAERS Safety Report 7035579 (Version 3)
Quarter: 2012Q4

REPORT INFORMATION
  Report Type: Report from Study
  Country: JP (occurrence: JP)
  Receive Date: 20090629
  Receipt Date: 20121123
  Transmission Date: 20130627
  Serious: Yes (Other)
  Sender: FDA-Public Use
  Company Number: PHHY2009JP24656

PATIENT

DRUGS (2)
  1. AMN107 [Suspect]
     Indication: MYELOID LEUKAEMIA
     Dosage: 800 mg, daily
     Route: 048
     Dates: start: 20090612, end: 20090614
  2. AMN107 [Suspect]
     Dosage: 400 mg, daily
     Route: 048
     Dates: start: 20090616, end: 20090618

REACTIONS (3)
  - Electrocardiogram QT prolonged [Recovered/Resolved]
  - Lipase increased [Recovering/Resolving]
  - Blood glucose increased [Recovered/Resolved]
